FAERS Safety Report 6772801 (Version 4)
Quarter: 2012Q4

REPORT INFORMATION
  Report Type: 
  Country: FR (occurrence: FR)
  Receive Date: 20080926
  Receipt Date: 20121002
  Transmission Date: 20130627
  Serious: Yes (Other)
  Sender: FDA-Public Use
  Company Number: PHHY2008FR22042

PATIENT
  Age: 61 None
  Sex: Male
  Weight: 69 kg

DRUGS (6)
  1. TASIGNA [Suspect]
     Indication: CHRONIC MYELOID LEUKAEMIA
     Dosage: 400 mg, BID
     Dates: start: 20080201, end: 20080917
  2. TASIGNA [Suspect]
     Dates: start: 20090131
  3. ANTACIDS [Concomitant]
  4. ZOLOFT [Concomitant]
     Dosage: 1 DF, daily
     Dates: start: 2006
  5. STILNOX [Concomitant]
     Dosage: 1 DF, daily
     Dates: start: 2006
  6. INEXIUM [Concomitant]
     Indication: ULCER

REACTIONS (8)
  - Angina pectoris [Unknown]
  - Arteriospasm coronary [Recovered/Resolved]
  - Arteriosclerosis coronary artery [Recovered/Resolved]
  - Chest pain [Recovered/Resolved]
  - Chest discomfort [Recovered/Resolved]
  - Electrocardiogram ST segment elevation [Unknown]
  - Trismus [Recovered/Resolved]
  - Dizziness [Recovered/Resolved]
